FAERS Safety Report 9124361 (Version 1)
Quarter: 2013Q1

REPORT INFORMATION
  Report Type: Spontaneous
  Country: US (occurrence: US)
  Receive Date: 20130227
  Receipt Date: 20130227
  Transmission Date: 20140127
  Serious: No
  Sender: FDA-Public Use
  Company Number: US-PFIZER INC-2013067831

PATIENT
  Age: 54 Year
  Sex: Female
  Weight: 65.76 kg

DRUGS (2)
  1. CHANTIX [Suspect]
     Dosage: UNK
     Route: 048
     Dates: start: 2008, end: 2008
  2. TUMS [Suspect]
     Dosage: UNK

REACTIONS (2)
  - Abdominal pain upper [Recovered/Resolved]
  - Vomiting [Unknown]
